FAERS Safety Report 9826953 (Version 1)
Quarter: 2013Q4

REPORT INFORMATION
  Report Type: Spontaneous
  Country: US (occurrence: None)
  Receive Date: 20131120
  Receipt Date: 20131120
  Transmission Date: 20140711
  Serious: Yes (Other)
  Sender: FDA-Public Use
  Company Number: US-JNJFOC-20130611091

PATIENT
  Sex: 0

DRUGS (2)
  1. EVITHROM [Suspect]
     Indication: HAEMOSTASIS
  2. LOCAL HAEMOSTATICS [Suspect]
     Indication: HAEMOSTASIS

REACTIONS (1)
  - Drug ineffective [None]
